FAERS Safety Report 7801312-1 (Version None)
Quarter: 2011Q4

REPORT INFORMATION
  Report Type: 
  Country: None (occurrence: None)
  Receive Date: 20111006
  Receipt Date: 20111006
  Transmission Date: 20120403
  Serious: Yes (Hospitalization)
  Sender: FDA-Public Use
  Company Number: None

PATIENT
  Age: 80 Year
  Sex: Male
  Weight: 85 kg

DRUGS (7)
  1. COUMADIN [Suspect]
     Indication: ATRIAL FIBRILLATION
     Dosage: 2.5MG Q SUN PO CHRONIC
     Route: 048
  2. LOVENOX [Suspect]
     Dosage: TWICE/WEEK SQ RECENT
     Route: 058
  3. M.V.I. [Concomitant]
  4. TRAZODONE HYDROCHLORIDE [Concomitant]
  5. ALBUTEROL [Concomitant]
  6. ASPIRIN [Suspect]
     Dosage: 5MG Q M-SAT PO
     Route: 048
  7. DIGOXIN [Concomitant]

REACTIONS (2)
  - GASTROINTESTINAL HAEMORRHAGE [None]
  - OPERATIVE HAEMORRHAGE [None]
